FAERS Safety Report 11444761 (Version 1)
Quarter: 2015Q3

REPORT INFORMATION
  Report Type: Report from Study
  Country: NL (occurrence: NL)
  Receive Date: 20150902
  Receipt Date: 20150902
  Transmission Date: 20151125
  Serious: Yes (Hospitalization)
  Sender: FDA-Public Use
  Company Number: NL-UNITED THERAPEUTICS-UNT-2014-002395

PATIENT
  Age: 72 Year
  Sex: Female
  Weight: 71.3 kg

DRUGS (5)
  1. UT-15C SR [Suspect]
     Active Substance: TREPROSTINIL DIOLAMINE
     Indication: PULMONARY ARTERIAL HYPERTENSION
     Dosage: 2.5 MG TID
     Route: 048
     Dates: start: 20140214
  2. SILDENAFIL. [Concomitant]
     Active Substance: SILDENAFIL
     Indication: PULMONARY ARTERIAL HYPERTENSION
     Dosage: 60 MG, QD
     Dates: start: 20140108
  3. REVATIO [Concomitant]
     Active Substance: SILDENAFIL CITRATE
     Indication: PULMONARY ARTERIAL HYPERTENSION
     Dosage: 60 MG, QD
     Route: 048
  4. BURINEX [Concomitant]
     Active Substance: BUMETANIDE
     Indication: PULMONARY ARTERIAL HYPERTENSION
     Dosage: 2 MG, QD
     Dates: start: 2014
  5. SPIRONOLACTONE. [Concomitant]
     Active Substance: SPIRONOLACTONE
     Indication: PULMONARY ARTERIAL HYPERTENSION
     Dosage: 50 MG, QD
     Route: 048
     Dates: start: 2013

REACTIONS (3)
  - Constipation [Recovered/Resolved]
  - Emotional distress [Recovered/Resolved]
  - Right ventricular failure [Recovered/Resolved]

NARRATIVE: CASE EVENT DATE: 20140611
